FAERS Safety Report 23497119 (Version 1)
Quarter: 2024Q1

REPORT INFORMATION
  Report Type: Spontaneous
  Country: US (occurrence: None)
  Receive Date: 20240207
  Receipt Date: 20240207
  Transmission Date: 20240410
  Serious: No
  Sender: FDA-Public Use
  Company Number: None

PATIENT
  Sex: Male

DRUGS (2)
  1. STELARA [Suspect]
     Active Substance: USTEKINUMAB
     Indication: Crohn^s disease
     Dosage: 90MG EVERY 8 WEEKS SUBCUTANEOUS?
     Route: 058
     Dates: start: 202308
  2. STELARA [Suspect]
     Active Substance: USTEKINUMAB
     Indication: Intestinal fistula

REACTIONS (1)
  - Crohn^s disease [None]
